FAERS Safety Report 11689047 (Version 1)
Quarter: 2015Q4

REPORT INFORMATION
  Report Type: Report from Study
  Country: US (occurrence: US)
  Receive Date: 20151102
  Receipt Date: 20151102
  Transmission Date: 20160304
  Serious: No
  Sender: FDA-Public Use
  Company Number: PHHY2015US123539

PATIENT
  Age: 43 Year
  Sex: Female

DRUGS (8)
  1. GILENYA [Suspect]
     Active Substance: FINGOLIMOD HYDROCHLORIDE
     Indication: MULTIPLE SCLEROSIS
     Route: 065
  2. ZOFRON [Concomitant]
     Active Substance: ONDANSETRON
     Indication: NAUSEA
     Dosage: UNK
     Dates: start: 20150225
  3. NORMAL SALINE [Concomitant]
     Active Substance: SODIUM CHLORIDE
     Indication: VOMITING
  4. DIPHENHYDRAMINE. [Concomitant]
     Active Substance: DIPHENHYDRAMINE
     Indication: NAUSEA
     Dosage: UNK
     Route: 030
     Dates: start: 20150226, end: 20150226
  5. NORMAL SALINE [Concomitant]
     Active Substance: SODIUM CHLORIDE
     Indication: NAUSEA
     Dosage: UNK
     Route: 042
     Dates: start: 20150224, end: 20150226
  6. ZOFRON [Concomitant]
     Active Substance: ONDANSETRON
     Indication: VOMITING
  7. VALACYCLOVIR [Concomitant]
     Active Substance: VALACYCLOVIR HYDROCHLORIDE
     Indication: ORAL HERPES
     Dosage: UNK
     Route: 065
     Dates: start: 20150227
  8. DIPHENHYDRAMINE. [Concomitant]
     Active Substance: DIPHENHYDRAMINE
     Indication: VOMITING

REACTIONS (11)
  - Hypokalaemia [Recovered/Resolved]
  - Localised infection [Recovered/Resolved]
  - Bradycardia [Recovered/Resolved]
  - Gastroenteritis viral [Recovered/Resolved]
  - Lymphocyte count decreased [Unknown]
  - Hypomagnesaemia [Unknown]
  - Migraine [Recovered/Resolved]
  - Muscle spasms [Recovered/Resolved]
  - Procedural pain [Unknown]
  - Blood pressure increased [Unknown]
  - Aspartate aminotransferase increased [Unknown]

NARRATIVE: CASE EVENT DATE: 20150203
